FAERS Safety Report 11490020 (Version 1)
Quarter: 2015Q3

REPORT INFORMATION
  Report Type: Spontaneous
  Country: US (occurrence: US)
  Receive Date: 20150910
  Receipt Date: 20150910
  Transmission Date: 20151125
  Serious: Yes (Hospitalization)
  Sender: FDA-Public Use
  Company Number: US-TEVA-574550USA

PATIENT
  Age: 62 Year
  Sex: Female

DRUGS (1)
  1. CAPECITABINE. [Suspect]
     Active Substance: CAPECITABINE
     Indication: COLON CANCER
     Dosage: 3000 MILLIGRAM DAILY; DAYS 1-14 AND TAKE 7 DAYS OFF AND REPEAT
     Route: 048
     Dates: start: 20150523

REACTIONS (7)
  - Dysgeusia [Unknown]
  - Dehydration [Unknown]
  - Fatigue [Unknown]
  - Rash [Unknown]
  - Hospitalisation [Unknown]
  - Diarrhoea [Unknown]
  - Palmar-plantar erythrodysaesthesia syndrome [Unknown]

NARRATIVE: CASE EVENT DATE: 20150623
